FAERS Safety Report 10680755 (Version 2)
Quarter: 2014Q4

REPORT INFORMATION
  Report Type: Spontaneous
  Country: US (occurrence: US)
  Receive Date: 20141229
  Receipt Date: 20141229
  Transmission Date: 20150529
  Serious: Yes (Hospitalization)
  Sender: FDA-Public Use
  Company Number: US-SANOFI-AVENTIS-2012SA058211

PATIENT
  Age: 56 Year
  Sex: Female
  Weight: 110 kg

DRUGS (45)
  1. INSULIN [Concomitant]
     Active Substance: INSULIN NOS
     Dates: start: 20031209
  2. ACTOS [Concomitant]
     Active Substance: PIOGLITAZONE HYDROCHLORIDE
     Route: 048
     Dates: start: 20040221
  3. NIFEDIPINE. [Concomitant]
     Active Substance: NIFEDIPINE
     Indication: BLOOD PRESSURE
     Dates: start: 20040305
  4. NOVOLIN [Concomitant]
     Active Substance: INSULIN HUMAN
     Dosage: DOSE:5 UNIT(S)
     Route: 058
     Dates: start: 20040327
  5. NITROTAB [Concomitant]
     Indication: CHEST PAIN
     Dosage: DISSOLVE 1 TABLET UNDER TONGUE EVERY 5 MINUTES AS NEEDED
     Dates: start: 20040221
  6. ZETIA [Concomitant]
     Active Substance: EZETIMIBE
  7. HYDRALAZINE [Concomitant]
     Active Substance: HYDRALAZINE HYDROCHLORIDE
  8. POTASSIUM [Concomitant]
     Active Substance: POTASSIUM
     Route: 048
     Dates: start: 20040404
  9. ZOCOR [Concomitant]
     Active Substance: SIMVASTATIN
     Indication: BLOOD CHOLESTEROL
     Dosage: DOSE: 5T (40MG) PO QPM
     Route: 048
     Dates: start: 20031209
  10. ZOCOR [Concomitant]
     Active Substance: SIMVASTATIN
     Indication: BLOOD CHOLESTEROL
     Route: 048
     Dates: start: 20040221
  11. NOVOLIN [Concomitant]
     Active Substance: INSULIN HUMAN
     Dosage: DOSE:5 UNIT(S)
     Route: 058
     Dates: start: 20031209
  12. NITROSTAT [Concomitant]
     Active Substance: NITROGLYCERIN
     Dates: start: 20031209
  13. PREDNISOLONE ACETATE. [Concomitant]
     Active Substance: PREDNISOLONE ACETATE
     Dosage: DOSE: INSTILL 1 DROP IN LEFT EYE EVERY HOUR
     Dates: start: 20040312
  14. ALBUTEROL. [Concomitant]
     Active Substance: ALBUTEROL
     Dosage: INHALE 2 PUFFS 4 TIMES DAILY
     Dates: start: 20040317
  15. DOXYCYCLINE HYCLATE. [Concomitant]
     Active Substance: DOXYCYCLINE HYCLATE
     Dates: start: 20040221
  16. TRAZODONE [Concomitant]
     Active Substance: TRAZODONE HYDROCHLORIDE
  17. DILAUDID [Concomitant]
     Active Substance: HYDROMORPHONE HYDROCHLORIDE
     Indication: PAIN
  18. PLAVIX [Suspect]
     Active Substance: CLOPIDOGREL BISULFATE
     Indication: STENT PLACEMENT
     Route: 048
     Dates: start: 20040221, end: 20120307
  19. ISOSORBIDE DINITRATE. [Concomitant]
     Active Substance: ISOSORBIDE DINITRATE
     Dates: start: 20031210
  20. FLUOXETINE HYDROCHLORIDE. [Concomitant]
     Active Substance: FLUOXETINE HYDROCHLORIDE
     Indication: DEPRESSION
     Route: 048
     Dates: start: 20040428
  21. NOVOLOG [Concomitant]
     Active Substance: INSULIN ASPART
  22. ALBUTEROL. [Concomitant]
     Active Substance: ALBUTEROL
  23. FUROSEMIDE. [Concomitant]
     Active Substance: FUROSEMIDE
     Route: 048
     Dates: start: 20040524
  24. NOVOLIN [Concomitant]
     Active Substance: INSULIN HUMAN
     Dosage: DOSE:5 UNIT(S)
     Route: 058
     Dates: start: 20040213
  25. LISINOPRIL. [Concomitant]
     Active Substance: LISINOPRIL
     Route: 048
     Dates: start: 20040317
  26. ACTOS [Concomitant]
     Active Substance: PIOGLITAZONE HYDROCHLORIDE
     Route: 048
     Dates: start: 20040317
  27. LANTUS [Concomitant]
     Active Substance: INSULIN GLARGINE
  28. IMDUR [Concomitant]
     Active Substance: ISOSORBIDE MONONITRATE
  29. ECOTRIN [Suspect]
     Active Substance: ASPIRIN
     Indication: STENT PLACEMENT
     Dosage: ECOTRIN LOW STRENGTH 81 MG ORAL TBEC DR TAB
     Route: 048
     Dates: start: 1998, end: 20120307
  30. BGSTAR LANCETS [Concomitant]
     Dates: start: 20040317
  31. RANITIDINE HYDROCHLORIDE. [Concomitant]
     Active Substance: RANITIDINE HYDROCHLORIDE
     Indication: DYSPEPSIA
     Route: 048
     Dates: start: 20031209
  32. HYDROCODONE W/ACETAMINOPHEN [Concomitant]
     Active Substance: ACETAMINOPHEN\HYDROCODONE BITARTRATE
     Indication: PAIN
     Dosage: TAKE 1 TO 2 TABLETS ORALLY EVERY 6 HOURS AS NEEDED
     Route: 048
     Dates: start: 20040329
  33. SULFAMETHOXAZOLE [Concomitant]
     Active Substance: SULFAMETHOXAZOLE
     Indication: URINARY TRACT INFECTION
     Dates: start: 20040305
  34. ASPIRIN. [Concomitant]
     Active Substance: ASPIRIN
  35. NORVASC [Concomitant]
     Active Substance: AMLODIPINE BESYLATE
  36. POTASSIUM CHLORIDE. [Concomitant]
     Active Substance: POTASSIUM CHLORIDE
  37. BGSTAR LANCETS [Concomitant]
     Dates: start: 20040315
  38. ROCALTROL [Concomitant]
     Active Substance: CALCITRIOL
  39. METOPROLOL [Concomitant]
     Active Substance: METOPROLOL
  40. VITAMIN D3 [Concomitant]
     Active Substance: CHOLECALCIFEROL
  41. ZOCOR [Concomitant]
     Active Substance: SIMVASTATIN
     Indication: BLOOD CHOLESTEROL
     Route: 048
     Dates: start: 20040427
  42. HYDROCODONE W/ACETAMINOPHEN [Concomitant]
     Active Substance: ACETAMINOPHEN\HYDROCODONE BITARTRATE
     Indication: PAIN
     Dosage: FREQUENCY: EVERY 4 TO 6 HOURS AS NEEDED
     Route: 048
     Dates: start: 20040312
  43. ALBUTEROL SULFATE. [Concomitant]
     Active Substance: ALBUTEROL SULFATE
     Dates: start: 20040305
  44. PRILOSEC [Concomitant]
     Active Substance: OMEPRAZOLE MAGNESIUM
  45. LIPITOR [Concomitant]
     Active Substance: ATORVASTATIN CALCIUM

REACTIONS (3)
  - Gastrointestinal haemorrhage [Recovered/Resolved]
  - Melaena [Recovered/Resolved]
  - Abdominal pain [Recovered/Resolved]

NARRATIVE: CASE EVENT DATE: 200406
